FAERS Safety Report 19748347 (Version 1)
Quarter: 2021Q3

REPORT INFORMATION
  Report Type: Spontaneous
  Country: SI (occurrence: SI)
  Receive Date: 20210825
  Receipt Date: 20210825
  Transmission Date: 20211014
  Serious: Yes (Life-Threatening, Hospitalization, Disabling)
  Sender: FDA-Public Use
  Company Number: SI-ORGANON-O2108SVN001481

PATIENT
  Age: 45 Year
  Sex: Female

DRUGS (2)
  1. NUVARING [Suspect]
     Active Substance: ETHINYL ESTRADIOL\ETONOGESTREL
     Indication: SALPINGO-OOPHORECTOMY UNILATERAL
     Dosage: 0.120 MG/0.015 MG PER 24H
     Route: 066
     Dates: start: 20210602
  2. COMIRNATY [Suspect]
     Active Substance: TOZINAMERAN
     Indication: COVID-19 IMMUNISATION
     Dosage: 2 DOSE, BATCH NUMBER FD8274 DOSE NUMBER: 2ND
     Route: 030
     Dates: start: 20210708, end: 20210708

REACTIONS (3)
  - Paradoxical embolism [Not Recovered/Not Resolved]
  - Pulmonary embolism [Not Recovered/Not Resolved]
  - Ischaemic stroke [Not Recovered/Not Resolved]

NARRATIVE: CASE EVENT DATE: 20210715
